FAERS Safety Report 4965984-1 (Version None)
Quarter: 2006Q2

REPORT INFORMATION
  Report Type: 
  Country: None (occurrence: None)
  Receive Date: 20060403
  Receipt Date: 20060323
  Transmission Date: 20061013
  Serious: Yes (Other)
  Sender: FDA-Public Use
  Company Number: 2006040520

PATIENT
  Age: 15 Year
  Sex: Male
  Weight: 77.1115 kg

DRUGS (1)
  1. COOL MINT LISTERINE              (MENTHOL, METHYL SALICYLATE, EUCALYPT [Suspect]
     Indication: ALCOHOL USE
     Dosage: 1/2 BOTTLE OVER TIME, NOT ALL AT ONCE, ORAL
     Route: 048
     Dates: start: 20060322, end: 20060322

REACTIONS (2)
  - FEELING ABNORMAL [None]
  - INCORRECT ROUTE OF DRUG ADMINISTRATION [None]
